FAERS Safety Report 13512081 (Version 2)
Quarter: 2017Q2

REPORT INFORMATION
  Report Type: Spontaneous
  Country: US (occurrence: US)
  Receive Date: 20170504
  Receipt Date: 20170602
  Transmission Date: 20170830
  Serious: No
  Sender: FDA-Public Use
  Company Number: PHEH2017US012664

PATIENT
  Sex: Female

DRUGS (1)
  1. TOBREX [Suspect]
     Active Substance: TOBRAMYCIN
     Indication: PRODUCT USED FOR UNKNOWN INDICATION
     Dosage: UNK, TID
     Route: 047
     Dates: start: 20170527, end: 20170530

REACTIONS (3)
  - Ocular discomfort [Unknown]
  - Abnormal sensation in eye [Recovering/Resolving]
  - Drug ineffective [Unknown]
